FAERS Safety Report 6601796-0 (Version None)
Quarter: 2010Q1

REPORT INFORMATION
  Report Type: 
  Country: None (occurrence: None)
  Receive Date: 20100218
  Receipt Date: 20100127
  Transmission Date: 20100710
  Serious: Yes (Death, Hospitalization)
  Sender: FDA-Public Use
  Company Number: 2009AC000526

PATIENT
  Age: 61 Year
  Sex: Female

DRUGS (71)
  1. DIGOXIN [Suspect]
     Dosage: 125 MCG; QD; PO
     Route: 048
  2. DIGOXIN [Suspect]
     Dosage: 0.25 MG; QOD; PO
     Route: 048
     Dates: start: 20050901
  3. DIGOXIN [Suspect]
     Dosage: .125 MG; QOD; PO
     Route: 048
     Dates: start: 20050901
  4. PROZAC [Concomitant]
  5. K-DUR [Concomitant]
  6. LASIX [Concomitant]
  7. NORVASC [Concomitant]
  8. CARDURA [Concomitant]
  9. ANTARA (MICRONIZED) [Concomitant]
  10. COREG [Concomitant]
  11. ZYVOX [Concomitant]
  12. BENICAR [Concomitant]
  13. BACTROBAN [Concomitant]
  14. PLAVIX [Concomitant]
  15. MONOPRIL [Concomitant]
  16. NASONEX [Concomitant]
  17. PRAVACHOL [Concomitant]
  18. KLOR-CON [Concomitant]
  19. PREDNISONE [Concomitant]
  20. AMBIEN [Concomitant]
  21. FLUOXETINE [Concomitant]
  22. PRAVASTATIN [Concomitant]
  23. AVELOX [Concomitant]
  24. DOXAZOSIN MESYLATE [Concomitant]
  25. ZETIA [Concomitant]
  26. AMLODIPINE [Concomitant]
  27. TRIMOX [Concomitant]
  28. ENALAPRIL MALEATE [Concomitant]
  29. FOLIC ACID [Concomitant]
  30. ZOLOFT [Concomitant]
  31. CALCIUM [Concomitant]
  32. HUMALOG [Concomitant]
  33. GLIPIZDE [Concomitant]
  34. LOPID [Concomitant]
  35. VERELAN [Concomitant]
  36. FOSINOPRIL SODIUM [Concomitant]
  37. DYNACIRC [Concomitant]
  38. PRAVACHOL [Concomitant]
  39. CARDURA [Concomitant]
  40. CALCIUM [Concomitant]
  41. VITAMIN D [Concomitant]
  42. VITAMIN C [Concomitant]
  43. PROZAC [Concomitant]
  44. BENICAR [Concomitant]
  45. NORVASC [Concomitant]
  46. COREG [Concomitant]
  47. ASPIRIN [Concomitant]
  48. ANTARA (MICRONIZED) [Concomitant]
  49. ZETIA [Concomitant]
  50. NASONEX [Concomitant]
  51. FOLTX [Concomitant]
  52. OMACOR [Concomitant]
  53. ZYRTEC [Concomitant]
  54. MIACALCIN [Concomitant]
  55. PROZAC [Concomitant]
  56. PRAVACHOL [Concomitant]
  57. LISPRO [Concomitant]
  58. ECOTRIN [Concomitant]
  59. PLAVIX [Concomitant]
  60. MONOPRIL [Concomitant]
  61. *HYDROCHLOROTHIAZIDE [Concomitant]
  62. ASTELIN [Concomitant]
  63. KLONOPIN [Concomitant]
  64. DYNACIRC [Concomitant]
  65. FORTICAL [Concomitant]
  66. OXYGEN [Concomitant]
  67. METANX [Concomitant]
  68. ALBUTEROL [Concomitant]
  69. SPIRIVA [Concomitant]
  70. FLONASE [Concomitant]
  71. BACTROBAN [Concomitant]

REACTIONS (31)
  - ABDOMINAL PAIN LOWER [None]
  - ACUTE SINUSITIS [None]
  - ADNEXA UTERI CYST [None]
  - ANXIETY [None]
  - ARTERIOSCLEROSIS CORONARY ARTERY [None]
  - ASTHMA [None]
  - BRADYCARDIA [None]
  - CARDIAC FAILURE CONGESTIVE [None]
  - CONDITION AGGRAVATED [None]
  - CORONARY ARTERY DISEASE [None]
  - CRYING [None]
  - DEPRESSION [None]
  - DIABETES MELLITUS [None]
  - FATIGUE [None]
  - HAEMODYNAMIC INSTABILITY [None]
  - HYPERCHOLESTEROLAEMIA [None]
  - HYPERLIPIDAEMIA [None]
  - HYPERTENSION [None]
  - HYPERTENSIVE HEART DISEASE [None]
  - HYPONATRAEMIA [None]
  - HYPOTENSION [None]
  - INSOMNIA [None]
  - NAUSEA [None]
  - NEPHROPATHY [None]
  - OBESITY [None]
  - OEDEMA [None]
  - POLYDIPSIA [None]
  - RENAL FAILURE CHRONIC [None]
  - SUBCUTANEOUS ABSCESS [None]
  - VOMITING [None]
  - WOUND INFECTION STAPHYLOCOCCAL [None]
